FAERS Safety Report 14848665 (Version 1)
Quarter: 2018Q2

REPORT INFORMATION
  Report Type: Spontaneous
  Country: US (occurrence: US)
  Receive Date: 20180504
  Receipt Date: 20180504
  Transmission Date: 20180711
  Serious: Yes (Other)
  Sender: FDA-Public Use
  Company Number: US-AMGEN-USASP2018058629

PATIENT
  Sex: Female

DRUGS (4)
  1. XGEVA [Suspect]
     Active Substance: DENOSUMAB
     Indication: METASTASES TO BONE
     Dosage: UNK
     Route: 065
     Dates: start: 2016
  2. ESTROGEN [Concomitant]
     Active Substance: ESTROGENS
     Indication: BREAST CANCER
  3. LETROZOLE. [Concomitant]
     Active Substance: LETROZOLE
     Indication: BREAST CANCER
  4. IBRANCE [Concomitant]
     Active Substance: PALBOCICLIB

REACTIONS (3)
  - Pain in extremity [Unknown]
  - Pain [Recovering/Resolving]
  - Myalgia [Recovering/Resolving]

NARRATIVE: CASE EVENT DATE: 201804
